FAERS Safety Report 7278307-2 (Version None)
Quarter: 2011Q1

REPORT INFORMATION
  Report Type: 
  Country: None (occurrence: None)
  Receive Date: 20110131
  Receipt Date: 20110123
  Transmission Date: 20110831
  Serious: Yes (Other)
  Sender: FDA-Public Use
  Company Number: TMDP-NO-1101S-0001

PATIENT
  Sex: Male

DRUGS (2)
  1. TECHNETIUM TC 99M MPI MDP [Suspect]
     Indication: METASTASES TO BONE
     Dosage: SINGLE DOSE
     Dates: start: 20101025, end: 20101025
  2. TECHNETIUM (TC99M) GENERATOR (SODIUM PERTECHNETATE TC99M) [Concomitant]

REACTIONS (1)
  - VERTIGO [None]
